FAERS Safety Report 11673351 (Version 1)
Quarter: 2015Q4

REPORT INFORMATION
  Report Type: Spontaneous
  Country: US (occurrence: None)
  Receive Date: 20151027
  Receipt Date: 20151027
  Transmission Date: 20160304
  Serious: No
  Sender: FDA-Public Use
  Company Number: None

PATIENT
  Age: 57 Year
  Sex: Male
  Weight: 93.9 kg

DRUGS (5)
  1. EPITOL [Concomitant]
     Active Substance: CARBAMAZEPINE
  2. IVAREST [Suspect]
     Active Substance: BENZYL ALCOHOL\DIPHENHYDRAMINE HYDROCHLORIDE\ZINC OXIDE
     Indication: DERMATITIS CONTACT
     Route: 061
  3. LISINOPRIL. [Concomitant]
     Active Substance: LISINOPRIL
  4. ATENOLOL. [Concomitant]
     Active Substance: ATENOLOL
  5. TYLENOL PM [Concomitant]
     Active Substance: ACETAMINOPHEN\DIPHENHYDRAMINE

REACTIONS (3)
  - Application site burn [None]
  - Application site erythema [None]
  - Application site pain [None]

NARRATIVE: CASE EVENT DATE: 20150902
